FAERS Safety Report 4663795-8 (Version None)
Quarter: 2005Q2

REPORT INFORMATION
  Report Type: 
  Country: None (occurrence: None)
  Receive Date: 20050516
  Receipt Date: 20050504
  Transmission Date: 20051028
  Serious: Yes (Other)
  Sender: FDA-Public Use
  Company Number: 2005072171

PATIENT
  Age: 50 Year
  Sex: Male
  Weight: 108.8633 kg

DRUGS (7)
  1. CELEBREX [Suspect]
     Indication: PAIN
     Dosage: 1D, ORAL
     Route: 048
  2. NEURONTIN [Suspect]
     Indication: PAIN MANAGEMENT
     Dates: start: 20030101, end: 20030101
  3. BEXTRA [Suspect]
     Indication: INFLAMMATION
     Dosage: 10 MG (10 MG, 1 IN 1 D), ORAL
     Route: 048
     Dates: start: 20050201
  4. IBUPROFEN [Suspect]
     Indication: ILL-DEFINED DISORDER
     Dosage: 2400 MG (800 MG, 3 IN 1 D)
     Dates: start: 20030101, end: 20030101
  5. OXYCODONE HCL [Concomitant]
  6. OXYCODONE HYDROCHLORIDE AND ACETAMINOPHEN [Concomitant]
  7. SERTRALINE HYDROCHLORIDE [Concomitant]

REACTIONS (9)
  - ANGIONEUROTIC OEDEMA [None]
  - DIARRHOEA [None]
  - DISEASE PROGRESSION [None]
  - DRUG EFFECT DECREASED [None]
  - FIBROMYALGIA [None]
  - GASTROINTESTINAL PAIN [None]
  - INFLAMMATION [None]
  - MUSCULOSKELETAL DISORDER [None]
  - OSTEOARTHRITIS [None]
